FAERS Safety Report 5203546-1 (Version None)
Quarter: 2007Q1

REPORT INFORMATION
  Report Type: 
  Country: None (occurrence: None)
  Receive Date: 20070110
  Receipt Date: 20070108
  Transmission Date: 20070707
  Serious: Yes (Hospitalization)
  Sender: FDA-Public Use
  Company Number: US-GLAXOSMITHKLINE-A0628542A

PATIENT
  Age: 27 Year
  Sex: Female
  Weight: 145.5 kg

DRUGS (5)
  1. LAMICTAL [Suspect]
     Indication: BIPOLAR DISORDER
     Dosage: 100MG TWICE PER DAY
     Route: 048
     Dates: start: 20051001, end: 20061101
  2. ABILIFY [Suspect]
     Indication: BIPOLAR DISORDER
     Dates: start: 20061001, end: 20061101
  3. GEODON [Suspect]
     Indication: BIPOLAR DISORDER
     Dates: start: 20061101, end: 20061101
  4. ORAL CONTRACEPTIVE [Concomitant]
  5. UNSPECIFIED MEDICATION [Concomitant]

REACTIONS (10)
  - BLOOD BILIRUBIN INCREASED [None]
  - CHOLESTASIS [None]
  - DRUG INTERACTION [None]
  - HEPATIC ENZYME INCREASED [None]
  - HEPATITIS TOXIC [None]
  - HEPATOCELLULAR DAMAGE [None]
  - JAUNDICE [None]
  - PRURITUS [None]
  - RASH MACULO-PAPULAR [None]
  - TRANSAMINASES INCREASED [None]
